FAERS Safety Report 21710345 (Version 1)
Quarter: 2022Q4

REPORT INFORMATION
  Report Type: Report from Study
  Country: US (occurrence: US)
  Receive Date: 20221211
  Receipt Date: 20221211
  Transmission Date: 20230113
  Serious: Yes (Other)
  Sender: FDA-Public Use
  Company Number: US-ASTELLAS-2021US014556

PATIENT
  Sex: Male

DRUGS (1)
  1. ENZALUTAMIDE [Suspect]
     Active Substance: ENZALUTAMIDE
     Indication: Prostate cancer
     Route: 048
     Dates: start: 20210401

REACTIONS (6)
  - Foreign body in throat [Unknown]
  - Sinus disorder [Unknown]
  - Nasopharyngitis [Unknown]
  - Somnolence [Recovered/Resolved]
  - Throat irritation [Unknown]
  - Product use complaint [Unknown]
